FAERS Safety Report 17409988 (Version 10)
Quarter: 2020Q3

REPORT INFORMATION
  Report Type: Spontaneous
  Country: CA (occurrence: CA)
  Receive Date: 20200212
  Receipt Date: 20200810
  Transmission Date: 20201102
  Serious: Yes (Other)
  Sender: FDA-Public Use
  Company Number: CA-PFIZER INC-2020025886

PATIENT
  Age: 63 Year
  Sex: Female

DRUGS (12)
  1. XELJANZ [Suspect]
     Active Substance: TOFACITINIB CITRATE
     Indication: COLITIS ULCERATIVE
     Dosage: 10 MG, 2X/DAY
     Route: 048
     Dates: start: 20200123, end: 20200323
  2. XELJANZ [Suspect]
     Active Substance: TOFACITINIB CITRATE
     Dosage: 10 MG, 3X/DAY
     Route: 048
     Dates: start: 2020
  3. CALCIUM [Concomitant]
     Active Substance: CALCIUM
     Indication: COLITIS ULCERATIVE
     Dosage: UNK
  4. XELJANZ [Suspect]
     Active Substance: TOFACITINIB CITRATE
     Dosage: 10 MG, 2X/DAY
     Route: 048
     Dates: start: 2020, end: 2020
  5. XELJANZ [Suspect]
     Active Substance: TOFACITINIB CITRATE
     Dosage: 15 MG, 1X/DAY (5 MG ONCE DAILY + 10 MG ONCE DAILY)
     Route: 048
     Dates: start: 202006, end: 2020
  6. PREDNISONE. [Concomitant]
     Active Substance: PREDNISONE
     Dosage: 40 MG, 1X/DAY
     Dates: start: 20191212
  7. PREDNISONE. [Concomitant]
     Active Substance: PREDNISONE
     Dosage: 7.5 MG, 1X/DAY
     Dates: end: 20200206
  8. XELJANZ [Suspect]
     Active Substance: TOFACITINIB CITRATE
     Dosage: 5 MG, 2X/DAY
     Route: 048
     Dates: start: 20200324, end: 20200331
  9. XELJANZ [Suspect]
     Active Substance: TOFACITINIB CITRATE
     Dosage: 15 MG, 1X/DAY
     Route: 048
     Dates: start: 20200401, end: 20200423
  10. CORTISONE [Concomitant]
     Active Substance: CORTISONE
     Dosage: UNK
  11. XELJANZ [Suspect]
     Active Substance: TOFACITINIB CITRATE
     Dosage: 15 MG, 1X/DAY (5 MG ONCE DAILY + 10 MG ONCE DAILY)
     Route: 048
     Dates: start: 20200601, end: 202006
  12. PREDNISONE. [Concomitant]
     Active Substance: PREDNISONE
     Dosage: 5 MG, 1X/DAY
     Dates: start: 20200207, end: 202002

REACTIONS (10)
  - Constipation [Unknown]
  - Therapeutic product effect decreased [Recovering/Resolving]
  - Oropharyngeal pain [Unknown]
  - Ocular vascular disorder [Not Recovered/Not Resolved]
  - Oral candidiasis [Unknown]
  - Contraindicated product administered [Unknown]
  - Product use issue [Unknown]
  - Headache [Recovered/Resolved]
  - Groin pain [Unknown]
  - Off label use [Unknown]

NARRATIVE: CASE EVENT DATE: 2020
